FAERS Safety Report 14231789 (Version 2)
Quarter: 2018Q3

REPORT INFORMATION
  Report Type: Other
  Country: CA (occurrence: CA)
  Receive Date: 20171128
  Receipt Date: 20180727
  Transmission Date: 20181010
  Serious: Yes (Disabling, Other)
  Sender: FDA-Public Use
  Company Number: CA-CELLTRION INC.-2017CA016318

PATIENT

DRUGS (29)
  1. ENBREL [Suspect]
     Active Substance: ETANERCEPT
     Indication: PSORIASIS
  2. CIMZIA [Suspect]
     Active Substance: CERTOLIZUMAB PEGOL
     Indication: PSORIATIC ARTHROPATHY
     Route: 065
  3. HUMIRA [Suspect]
     Active Substance: ADALIMUMAB
     Indication: PSORIATIC ARTHROPATHY
     Route: 065
  4. USTEKINUMAB [Suspect]
     Active Substance: USTEKINUMAB
     Indication: PSORIATIC ARTHROPATHY
     Route: 065
  5. FOLIC ACID. [Concomitant]
     Active Substance: FOLIC ACID
     Route: 065
  6. APO?IBUPROFEN [Suspect]
     Active Substance: IBUPROFEN
     Indication: PRODUCT USED FOR UNKNOWN INDICATION
     Dosage: 600 MG, UNK
     Route: 048
  7. CERTOLIZUMAB PEGOL [Suspect]
     Active Substance: CERTOLIZUMAB PEGOL
     Indication: PSORIATIC ARTHROPATHY
     Route: 065
  8. MOTRIN [Suspect]
     Active Substance: IBUPROFEN
     Indication: PRODUCT USED FOR UNKNOWN INDICATION
     Dosage: 600 MG, UNK
     Route: 048
  9. METHOTREXATE SODIUM. [Concomitant]
     Active Substance: METHOTREXATE SODIUM
     Route: 065
  10. ENBREL [Suspect]
     Active Substance: ETANERCEPT
     Indication: PSORIATIC ARTHROPATHY
  11. SIMPONI [Suspect]
     Active Substance: GOLIMUMAB
     Indication: PSORIATIC ARTHROPATHY
     Route: 065
  12. MOGADON [Concomitant]
     Active Substance: NITRAZEPAM
     Route: 065
  13. SULFASALAZINE. [Suspect]
     Active Substance: SULFASALAZINE
     Indication: PRODUCT USED FOR UNKNOWN INDICATION
     Route: 065
  14. APREMILAST [Suspect]
     Active Substance: APREMILAST
     Indication: PSORIATIC ARTHROPATHY
     Route: 065
  15. INFLIXIMAB PFIZER (UNKNOWN) [Suspect]
     Active Substance: INFLIXIMAB
     Indication: PSORIATIC ARTHROPATHY
     Route: 065
  16. APO?CYCLOSPORINE [Suspect]
     Active Substance: CYCLOSPORINE
     Indication: PRODUCT USED FOR UNKNOWN INDICATION
     Route: 065
  17. COLCHICINE. [Concomitant]
     Active Substance: COLCHICINE
     Route: 065
  18. OTEZLA [Suspect]
     Active Substance: APREMILAST
     Indication: PSORIATIC ARTHROPATHY
     Route: 065
  19. ENBREL [Suspect]
     Active Substance: ETANERCEPT
     Indication: RHEUMATOID ARTHRITIS
     Dosage: UNK
     Route: 065
  20. ADALIMUMAB [Suspect]
     Active Substance: ADALIMUMAB
     Indication: PSORIATIC ARTHROPATHY
     Route: 058
  21. APO?LEFLUNOMIDE [Suspect]
     Active Substance: LEFLUNOMIDE
     Indication: PRODUCT USED FOR UNKNOWN INDICATION
     Route: 065
  22. GOLIMUMAB [Suspect]
     Active Substance: GOLIMUMAB
     Indication: PSORIATIC ARTHROPATHY
     Route: 058
  23. STELARA [Suspect]
     Active Substance: USTEKINUMAB
     Indication: PSORIATIC ARTHROPATHY
     Route: 065
  24. FEBUXOSTAT. [Concomitant]
     Active Substance: FEBUXOSTAT
     Route: 065
  25. OXYNEO [Concomitant]
     Active Substance: OXYCODONE
     Route: 065
  26. ABATACEPT [Suspect]
     Active Substance: ABATACEPT
     Indication: PSORIATIC ARTHROPATHY
     Route: 065
  27. ORENCIA [Suspect]
     Active Substance: ABATACEPT
     Indication: PSORIATIC ARTHROPATHY
     Route: 065
  28. OXYCODONE HYDROCHLORIDE. [Concomitant]
     Active Substance: OXYCODONE HYDROCHLORIDE
     Route: 065
  29. ULORIC [Concomitant]
     Active Substance: FEBUXOSTAT
     Route: 065

REACTIONS (18)
  - Enthesopathy [Unknown]
  - Synovitis [Unknown]
  - Drug ineffective [Unknown]
  - C-reactive protein abnormal [Unknown]
  - Generalised erythema [Unknown]
  - Alanine aminotransferase abnormal [Unknown]
  - Alanine aminotransferase increased [Unknown]
  - Tendonitis [Unknown]
  - Headache [Unknown]
  - Drug hypersensitivity [Unknown]
  - Psoriatic arthropathy [Unknown]
  - Loss of personal independence in daily activities [Unknown]
  - Treatment failure [Unknown]
  - Tenosynovitis [Unknown]
  - Drug intolerance [Unknown]
  - Nausea [Unknown]
  - Tongue disorder [Unknown]
  - Aspartate aminotransferase increased [Unknown]
